FAERS Safety Report 17260672 (Version 2)
Quarter: 2023Q2

REPORT INFORMATION
  Report Type: Report from Study
  Country: US (occurrence: US)
  Receive Date: 20200113
  Receipt Date: 20230607
  Transmission Date: 20230721
  Serious: No
  Sender: FDA-Public Use
  Company Number: US-SHIRE-US202000383

PATIENT
  Sex: Female
  Weight: 59.41 kg

DRUGS (12)
  1. HUMAN IMMUNOGLOBULIN G [Suspect]
     Active Substance: HUMAN IMMUNOGLOBULIN G
     Indication: Selective IgG subclass deficiency
     Dosage: 6 GRAM, 1/WEEK
     Route: 058
     Dates: start: 20191218
  2. HUMAN IMMUNOGLOBULIN G [Suspect]
     Active Substance: HUMAN IMMUNOGLOBULIN G
     Dosage: 9 GRAM, Q2WEEKS
     Route: 058
     Dates: start: 20191220
  3. ACETAMINOPHEN [Concomitant]
     Active Substance: ACETAMINOPHEN
  4. DIPHENHYDRAMINE [Concomitant]
     Active Substance: DIPHENHYDRAMINE
  5. EPINEPHRINE [Concomitant]
     Active Substance: EPINEPHRINE
  6. ADVAIR HFA [Concomitant]
     Active Substance: FLUTICASONE PROPIONATE\SALMETEROL XINAFOATE
  7. NAPROXEN [Concomitant]
     Active Substance: NAPROXEN
  8. NORETHINDRONE [Concomitant]
     Active Substance: NORETHINDRONE
  9. ORENCIA [Concomitant]
     Active Substance: ABATACEPT
  10. TYLENOL [Concomitant]
     Active Substance: ACETAMINOPHEN
  11. Lmx [Concomitant]
  12. DIPHENHYDRAMINE HYDROCHLORIDE [Concomitant]
     Active Substance: DIPHENHYDRAMINE HYDROCHLORIDE
     Dosage: UNK
     Route: 065

REACTIONS (4)
  - Nasopharyngitis [Unknown]
  - Obstruction [Unknown]
  - Dermatitis contact [Unknown]
  - Chills [Unknown]
